FAERS Safety Report 6562121-7 (Version None)
Quarter: 2010Q1

REPORT INFORMATION
  Report Type: 
  Country: None (occurrence: None)
  Receive Date: 20100130
  Receipt Date: 20091203
  Transmission Date: 20100710
  Serious: No
  Sender: FDA-Public Use
  Company Number: US-ABBOTT-09P-163-0604595-00

PATIENT
  Sex: Female
  Weight: 77.18 kg

DRUGS (2)
  1. HUMIRA [Suspect]
     Indication: CROHN'S DISEASE
     Dosage: LAST DOSE 28 AUG 2009
     Route: 058
     Dates: start: 20090424, end: 20090901
  2. HUMIRA [Suspect]
     Route: 058
     Dates: start: 20090925

REACTIONS (8)
  - COUGH [None]
  - CROHN'S DISEASE [None]
  - DIARRHOEA HAEMORRHAGIC [None]
  - H1N1 INFLUENZA [None]
  - INJECTION SITE PAIN [None]
  - PAIN [None]
  - PYREXIA [None]
  - SINUS CONGESTION [None]
